FAERS Safety Report 14573470 (Version 2)
Quarter: 2018Q1

REPORT INFORMATION
  Report Type: Report from Study
  Country: FR (occurrence: FR)
  Receive Date: 20180226
  Receipt Date: 20180314
  Transmission Date: 20180509
  Serious: Yes (Death)
  Sender: FDA-Public Use
  Company Number: FR-BAYER-2018-035911

PATIENT
  Age: 73 Year
  Sex: Male
  Weight: 80 kg

DRUGS (2)
  1. ACETYLSALICYLIC ACID({=100 MG) [Suspect]
     Active Substance: ASPIRIN
     Indication: ISCHAEMIC HEART DISEASE PROPHYLAXIS
     Dosage: TOTAL DAILY DOSE 200 MG
     Route: 048
     Dates: start: 20180213, end: 20180218
  2. ACETYLSALICYLIC ACID({=100 MG) [Suspect]
     Active Substance: ASPIRIN
     Indication: ACUTE CORONARY SYNDROME

REACTIONS (1)
  - Sudden death [Fatal]

NARRATIVE: CASE EVENT DATE: 20180218
